FAERS Safety Report 7368517-8 (Version None)
Quarter: 2011Q1

REPORT INFORMATION
  Report Type: 
  Country: None (occurrence: None)
  Receive Date: 20110309
  Receipt Date: 20110228
  Transmission Date: 20110831
  Serious: No
  Sender: FDA-Public Use
  Company Number: 2011SP002401

PATIENT
  Age: 40 Year
  Sex: Female

DRUGS (7)
  1. ALPRAZOLAM [Suspect]
     Indication: DEPRESSION
     Dosage: 1.2 MG; QD; PO
     Route: 048
     Dates: start: 20100823, end: 20100830
  2. LORAZEPAM [Suspect]
     Indication: DEPRESSION
     Dosage: 1 MG; QD; PO
     Route: 048
     Dates: start: 20100824, end: 20100830
  3. ROHYPNOL (FLUNITRAZEPAM) [Suspect]
     Indication: DEPRESSION
     Dosage: 2 MG; PO
     Route: 048
     Dates: start: 20100823, end: 20100830
  4. MIRTAZAPINE [Suspect]
     Indication: DEPRESSION
     Dosage: 15 MG; QD; PO
     Route: 048
     Dates: start: 20100824, end: 20100829
  5. AMOXAN [Concomitant]
  6. SILECE [Concomitant]
  7. CONSTAN [Concomitant]

REACTIONS (5)
  - MALAISE [None]
  - DEPRESSED MOOD [None]
  - DRUG INTERACTION [None]
  - SOMNOLENCE [None]
  - SLEEP DISORDER [None]
